FAERS Safety Report 6342201-1 (Version None)
Quarter: 2009Q3

REPORT INFORMATION
  Report Type: 
  Country: None (occurrence: None)
  Receive Date: 20090904
  Receipt Date: 20090904
  Transmission Date: 20100115
  Serious: No
  Sender: FDA-Public Use
  Company Number: None

PATIENT
  Age: 41 Year
  Sex: Female
  Weight: 61.2356 kg

DRUGS (10)
  1. PAMELOR [Suspect]
     Indication: DEPRESSION
     Dosage: 1 CAPSULE BY MOUTH EVERY NIGHT AT BED PO
     Route: 048
     Dates: start: 20080323, end: 20090412
  2. NORTRIPTYLINE HCL [Suspect]
     Indication: DEPRESSION
     Dosage: 1 CAPSULE BY MOUTH EVERY NIGHT AT BED PO
     Route: 048
     Dates: start: 20090216, end: 20090515
  3. PREMPRO [Concomitant]
  4. LORAZEPAM [Concomitant]
  5. PREVACID [Concomitant]
  6. GERD CALCIUM [Concomitant]
  7. D VITAMIN [Concomitant]
  8. MULTI-VITAMIN [Concomitant]
  9. POTASSIUM GLUCONATE TAB [Concomitant]
  10. LIDOCAINE [Concomitant]

REACTIONS (2)
  - DEAFNESS BILATERAL [None]
  - TINNITUS [None]
